FAERS Safety Report 15279263 (Version 1)
Quarter: 2018Q3

REPORT INFORMATION
  Report Type: Spontaneous
  Country: ES (occurrence: ES)
  Receive Date: 20180815
  Receipt Date: 20180815
  Transmission Date: 20181010
  Serious: Yes (Hospitalization)
  Sender: FDA-Public Use
  Company Number: ES-TEVA-2018-ES-941062

PATIENT
  Age: 82 Year
  Sex: Female

DRUGS (6)
  1. SIMVASTATINA (1023A) [Suspect]
     Active Substance: SIMVASTATIN
     Dosage: 20 MILLIGRAM DAILY;
     Route: 048
     Dates: start: 20180616, end: 20180616
  2. QUETIAPINA (1136A) [Interacting]
     Active Substance: QUETIAPINE
     Dosage: 50 MILLIGRAM DAILY;
     Route: 048
     Dates: start: 20180616, end: 20180616
  3. PARACETAMOL (12A) [Suspect]
     Active Substance: ACETAMINOPHEN
     Route: 048
     Dates: start: 20180616, end: 20180616
  4. LORAZEPAM (1864A) [Interacting]
     Active Substance: LORAZEPAM
     Dosage: 1 MILLIGRAM DAILY;
     Route: 048
     Dates: start: 20180616, end: 20180616
  5. CARVEDILOL (2431A) [Suspect]
     Active Substance: CARVEDILOL
     Dosage: 6.25 MILLIGRAM DAILY;
     Route: 048
     Dates: start: 20180616, end: 20180616
  6. OMEPRAZOL (2141A) [Suspect]
     Active Substance: OMEPRAZOLE
     Dosage: 20 MILLIGRAM DAILY;
     Route: 048
     Dates: start: 20180616, end: 20180616

REACTIONS (6)
  - Wrong patient received medication [Recovered/Resolved]
  - Hypotension [Recovered/Resolved]
  - Bradycardia [Recovered/Resolved]
  - Drug interaction [Unknown]
  - Dysarthria [Recovered/Resolved]
  - Somnolence [Recovered/Resolved]

NARRATIVE: CASE EVENT DATE: 20180616
